FAERS Safety Report 6094438-7 (Version None)
Quarter: 2009Q1

REPORT INFORMATION
  Report Type: 
  Country: None (occurrence: None)
  Receive Date: 20090226
  Receipt Date: 20090206
  Transmission Date: 20090719
  Serious: Yes (Hospitalization, Other)
  Sender: FDA-Public Use
  Company Number: AT-SANOFI-SYNTHELABO-F01200800411

PATIENT

DRUGS (10)
  1. PANTOPRAZOLE SODIUM [Concomitant]
     Route: 042
  2. PENTOXIFYLLINE [Concomitant]
     Route: 042
  3. ACETYLSALICYLIC ACID SRT [Concomitant]
     Route: 042
  4. ENOXAPARIN SODIUM [Concomitant]
     Route: 058
  5. PIPERACILLIN SODIUM [Concomitant]
     Route: 042
  6. CIPROFLOXACIN HCL [Suspect]
     Route: 042
     Dates: start: 20071229
  7. CETUXIMAB [Suspect]
     Route: 041
     Dates: start: 20071220, end: 20071220
  8. FOLINIC ACID [Suspect]
     Route: 041
     Dates: start: 20071220, end: 20071220
  9. FLUOROURACIL [Suspect]
     Route: 041
     Dates: start: 20071220, end: 20071220
  10. OXALIPLATIN [Suspect]
     Indication: COLON CANCER
     Route: 041
     Dates: start: 20071220, end: 20071220

REACTIONS (3)
  - CHOLECYSTITIS [None]
  - DIARRHOEA [None]
  - PNEUMONIA [None]
